FAERS Safety Report 8984582 (Version 2)
Quarter: 2013Q1

REPORT INFORMATION
  Report Type: Spontaneous
  Country: ES (occurrence: ES)
  Receive Date: 20121226
  Receipt Date: 20130301
  Transmission Date: 20140127
  Serious: Yes (Hospitalization, Other)
  Sender: FDA-Public Use
  Company Number: ES-JNJFOC-20121207743

PATIENT
  Sex: 0

DRUGS (12)
  1. RISPERDAL [Suspect]
     Indication: SCHIZOPHRENIA
     Route: 048
  2. CLOZAPINE [Suspect]
     Indication: SCHIZOPHRENIA
     Route: 065
  3. AMISULPRIDE [Suspect]
     Indication: SCHIZOPHRENIA
     Route: 065
  4. OLANZAPINE [Suspect]
     Indication: SCHIZOPHRENIA
     Route: 065
  5. QUETIAPINE [Suspect]
     Indication: SCHIZOPHRENIA
     Route: 065
  6. ARIPIPRAZOLE [Suspect]
     Indication: SCHIZOPHRENIA
     Route: 065
  7. PERPHENAZINE [Suspect]
     Indication: SCHIZOPHRENIA
     Route: 065
  8. ZIPRASIDONE [Suspect]
     Indication: SCHIZOPHRENIA
     Route: 065
  9. TRIFLUOPERAZINE [Suspect]
     Indication: SCHIZOPHRENIA
     Route: 065
  10. BENZODIAZEPINE NOS [Suspect]
     Indication: SCHIZOPHRENIA
     Route: 065
  11. PALIPERIDONE [Suspect]
     Indication: SCHIZOPHRENIA
     Route: 048
  12. HALOPERIDOL [Suspect]
     Indication: SCHIZOPHRENIA
     Route: 065

REACTIONS (9)
  - Drug resistance [Unknown]
  - Hospitalisation [Unknown]
  - Neuroleptic malignant syndrome [Unknown]
  - Catatonia [Unknown]
  - Tachycardia [Unknown]
  - Agitation [Unknown]
  - Restlessness [Unknown]
  - Myalgia [Unknown]
  - Headache [Unknown]
